FAERS Safety Report 17484487 (Version 2)
Quarter: 2020Q2

REPORT INFORMATION
  Report Type: Spontaneous
  Country: US (occurrence: US)
  Receive Date: 20200302
  Receipt Date: 20200513
  Transmission Date: 20200713
  Serious: Yes (Other)
  Sender: FDA-Public Use
  Company Number: US-BAYER-2020-033047

PATIENT
  Age: 67 Year
  Sex: Male

DRUGS (1)
  1. AFRIN NO DRIP SEVERE CONGESTION [Suspect]
     Active Substance: OXYMETAZOLINE HYDROCHLORIDE
     Indication: PRODUCT USED FOR UNKNOWN INDICATION
     Dosage: EVERY 4 TO 5 HOURS
     Route: 055
     Dates: start: 1975

REACTIONS (4)
  - Intentional product use issue [Unknown]
  - Drug dependence [Unknown]
  - Incorrect product administration duration [Unknown]
  - Overdose [Unknown]
